FAERS Safety Report 13232780 (Version 1)
Quarter: 2017Q1

REPORT INFORMATION
  Report Type: Spontaneous
  Country: PH (occurrence: PH)
  Receive Date: 20170214
  Receipt Date: 20170214
  Transmission Date: 20170428
  Serious: Yes (Other)
  Sender: FDA-Public Use
  Company Number: PH-009507513-1702PHL001048

PATIENT
  Sex: Female

DRUGS (2)
  1. ETONOGESTREL IMPLANT- UNKNOWN [Suspect]
     Active Substance: ETONOGESTREL
     Route: 059
  2. MULTILOAD CU250 INTRA-UTERINE DEVICE [Suspect]
     Active Substance: COPPER
     Indication: PRODUCT USED FOR UNKNOWN INDICATION
     Route: 015

REACTIONS (5)
  - Abortion early [Unknown]
  - Unintended pregnancy [Recovered/Resolved]
  - Pregnancy with contraceptive device [Recovered/Resolved]
  - Device malfunction [Unknown]
  - Maternal exposure timing unspecified [None]
